FAERS Safety Report 14673184 (Version 1)
Quarter: 2018Q1

REPORT INFORMATION
  Report Type: Report from Study
  Country: US (occurrence: US)
  Receive Date: 20180323
  Receipt Date: 20180323
  Transmission Date: 20180509
  Serious: Yes (Other)
  Sender: FDA-Public Use
  Company Number: US-BAYER-2018-052455

PATIENT

DRUGS (5)
  1. HEPARIN [Concomitant]
     Active Substance: HEPARIN SODIUM
     Dosage: 5000 U, UNK
  2. CLOPIDOGREL [Interacting]
     Active Substance: CLOPIDOGREL BISULFATE
     Indication: PLATELET AGGREGATION INHIBITION
     Dosage: 75 MG, QD
  3. REOPRO [Suspect]
     Active Substance: ABCIXIMAB
     Indication: EMBOLISM
     Dosage: 10 MG, UNK
     Route: 042
  4. ASPIRIN. [Suspect]
     Active Substance: ASPIRIN
     Indication: PLATELET AGGREGATION INHIBITION
     Dosage: 325 MG, QD
  5. PRASUGREL. [Concomitant]
     Active Substance: PRASUGREL
     Dosage: 5 MG, UNK

REACTIONS (4)
  - Drug administration error [Recovered/Resolved]
  - Labelled drug-drug interaction medication error [Recovered/Resolved]
  - Cerebral haemorrhage [Recovered/Resolved]
  - Muscular weakness [Recovered/Resolved]
